FAERS Safety Report 8391705-9 (Version None)
Quarter: 2012Q2

REPORT INFORMATION
  Report Type: 
  Country: None (occurrence: None)
  Receive Date: 20120529
  Receipt Date: 20120525
  Transmission Date: 20120825
  Serious: Yes (Life-Threatening, Hospitalization)
  Sender: FDA-Public Use
  Company Number: PHHO2012IN008018

PATIENT
  Age: 53 Year
  Sex: Male

DRUGS (5)
  1. IMATINIB MESYLATE [Suspect]
     Dosage: 600 MG, QD
     Route: 048
     Dates: start: 20120301, end: 20120420
  2. DEXAMETHASONE [Concomitant]
     Indication: DYSPNOEA
     Dosage: UNK
     Dates: start: 20120112, end: 20120112
  3. RANITIDINE [Concomitant]
     Indication: DYSPNOEA
     Dosage: UNK
     Dates: start: 20120112, end: 20120114
  4. IMATINIB MESYLATE [Suspect]
     Indication: CHRONIC MYELOID LEUKAEMIA
     Dosage: 600 MG, QD
     Route: 048
     Dates: start: 20090702, end: 20120125
  5. DERIPHYLLIN [Concomitant]
     Indication: DYSPNOEA
     Dosage: UNK
     Dates: start: 20120112, end: 20120114

REACTIONS (1)
  - ATRIOVENTRICULAR BLOCK COMPLETE [None]
